FAERS Safety Report 7593457-9 (Version None)
Quarter: 2011Q3

REPORT INFORMATION
  Report Type: 
  Country: None (occurrence: None)
  Receive Date: 20110706
  Receipt Date: 20110624
  Transmission Date: 20111222
  Serious: Yes (Hospitalization)
  Sender: FDA-Public Use
  Company Number: US-BAYER-201037354NA

PATIENT
  Age: 20 Year
  Sex: Female
  Weight: 81.633 kg

DRUGS (1)
  1. YAZ [Suspect]
     Indication: PRODUCT USED FOR UNKNOWN INDICATION
     Dosage: UNK UNK, UNK
     Route: 048
     Dates: start: 20070101, end: 20081020

REACTIONS (4)
  - EMOTIONAL DISTRESS [None]
  - GALLBLADDER INJURY [None]
  - SCAR [None]
  - PAIN [None]
